FAERS Safety Report 5866577-4 (Version None)
Quarter: 2008Q3

REPORT INFORMATION
  Report Type: 
  Country: None (occurrence: None)
  Receive Date: 20080829
  Receipt Date: 20080829
  Transmission Date: 20090109
  Serious: Yes (Other)
  Sender: FDA-Public Use
  Company Number: None

PATIENT
  Sex: Female
  Weight: 74.8435 kg

DRUGS (2)
  1. BUDEPRION [Suspect]
     Indication: ANXIETY
     Dosage: 150 MG 3 X DAILY ORAL
     Route: 048
     Dates: start: 20080701, end: 20080801
  2. BUDEPRION [Suspect]
     Indication: PANIC DISORDER
     Dosage: 150 MG 3 X DAILY ORAL
     Route: 048
     Dates: start: 20080701, end: 20080801

REACTIONS (8)
  - ANXIETY [None]
  - DEREALISATION [None]
  - FLIGHT OF IDEAS [None]
  - HEADACHE [None]
  - MENTAL STATUS CHANGES [None]
  - MOOD ALTERED [None]
  - PANIC DISORDER [None]
  - TREMOR [None]
